FAERS Safety Report 8473294-3 (Version None)
Quarter: 2012Q2

REPORT INFORMATION
  Report Type: 
  Country: None (occurrence: None)
  Receive Date: 20120628
  Receipt Date: 20120623
  Transmission Date: 20120825
  Serious: Yes (Hospitalization)
  Sender: FDA-Public Use
  Company Number: DE-AMGEN-DEUSP2012039020

PATIENT

DRUGS (2)
  1. ANTINEOPLASTIC AGENTS [Concomitant]
     Indication: BREAST CANCER
  2. NEULASTA [Suspect]
     Indication: NEUTROPENIA

REACTIONS (1)
  - THROMBOCYTOPENIA [None]
